FAERS Safety Report 13011475 (Version 8)
Quarter: 2017Q1

REPORT INFORMATION
  Report Type: Spontaneous
  Country: US (occurrence: US)
  Receive Date: 20161209
  Receipt Date: 20170227
  Transmission Date: 20170428
  Serious: Yes (Life-Threatening, Hospitalization)
  Sender: FDA-Public Use
  Company Number: US-HORIZON-RAV-0267-2016

PATIENT
  Age: 14 Year
  Sex: Male
  Weight: 50 kg

DRUGS (6)
  1. ARGININE [Concomitant]
     Active Substance: ARGININE
     Indication: ARGININOSUCCINATE SYNTHETASE DEFICIENCY
     Route: 048
  2. RAVICTI [Suspect]
     Active Substance: GLYCEROL PHENYLBUTYRATE
     Indication: ARGININOSUCCINATE SYNTHETASE DEFICIENCY
     Dosage: 5.5 ML TID
     Route: 048
     Dates: start: 20150528
  3. ANAMIX JR [Concomitant]
  4. PEDIASURE [Concomitant]
     Active Substance: VITAMINS
     Dosage: TID
  5. PRO-PHREE [Concomitant]
  6. SODIUM BENZOATE [Concomitant]
     Active Substance: SODIUM BENZOATE
     Indication: ARGININOSUCCINATE SYNTHETASE DEFICIENCY
     Route: 048
     Dates: start: 201611

REACTIONS (9)
  - Blood potassium decreased [Recovered/Resolved]
  - Haemoglobin decreased [Recovered/Resolved]
  - Cognitive disorder [Recovered/Resolved]
  - Headache [Recovered/Resolved]
  - Hyperammonaemic crisis [Recovered/Resolved]
  - Cough [Recovered/Resolved]
  - Seizure [Recovered/Resolved]
  - Pallor [Recovered/Resolved]
  - Irritability [Recovered/Resolved]

NARRATIVE: CASE EVENT DATE: 20161118
